FAERS Safety Report 14921820 (Version 2)
Quarter: 2018Q2

REPORT INFORMATION
  Report Type: Report from Study
  Country: US (occurrence: US)
  Receive Date: 20180522
  Receipt Date: 20180622
  Transmission Date: 20180711
  Serious: Yes (Other)
  Sender: FDA-Public Use
  Company Number: PHEH2018US018312

PATIENT
  Sex: Female

DRUGS (1)
  1. ZORTRESS [Suspect]
     Active Substance: EVEROLIMUS
     Indication: PRODUCT USED FOR UNKNOWN INDICATION
     Dosage: 0.5 MG, QID
     Route: 048

REACTIONS (5)
  - Peripheral swelling [Recovering/Resolving]
  - Bone marrow oedema [Recovering/Resolving]
  - Hypersensitivity [Unknown]
  - Fluid retention [Unknown]
  - Joint swelling [Recovering/Resolving]
